FAERS Safety Report 5699450-5 (Version None)
Quarter: 2008Q2

REPORT INFORMATION
  Report Type: 
  Country: None (occurrence: None)
  Receive Date: 20080407
  Receipt Date: 20080407
  Transmission Date: 20081010
  Serious: No
  Sender: FDA-Public Use
  Company Number: None

PATIENT
  Sex: Female
  Weight: 68.4932 kg

DRUGS (2)
  1. ESTRADIOL [Suspect]
     Indication: MENOPAUSE
     Dosage: 2 MG QD PO
     Route: 048
     Dates: start: 20050706, end: 20051001
  2. MEDROXYPROGESTERONE [Suspect]
     Indication: MENOPAUSE
     Dosage: 5 MG QD PO
     Route: 048
     Dates: start: 20050706, end: 20051001

REACTIONS (2)
  - FURUNCLE [None]
  - NIGHT SWEATS [None]
